FAERS Safety Report 5601218-2 (Version None)
Quarter: 2008Q1

REPORT INFORMATION
  Report Type: 
  Country: None (occurrence: None)
  Receive Date: 20080118
  Receipt Date: 20080108
  Transmission Date: 20080703
  Serious: Yes (Hospitalization)
  Sender: FDA-Public Use
  Company Number: 2008MP000004

PATIENT
  Sex: Female

DRUGS (1)
  1. GLIADEL [Suspect]
     Dosage: ;1X;ICER

REACTIONS (1)
  - IMPLANT SITE REACTION [None]
